FAERS Safety Report 25946391 (Version 4)
Quarter: 2025Q4

REPORT INFORMATION
  Report Type: Spontaneous
  Country: GB (occurrence: GB)
  Receive Date: 20251022
  Receipt Date: 20251225
  Transmission Date: 20260118
  Serious: Yes (Life-Threatening, Hospitalization, Other)
  Sender: TEVA
  Company Number: GB-MLMSERVICE-20250919-PI650675-00218-1

PATIENT
  Age: 68 Year
  Sex: Female

DRUGS (8)
  1. PREDNISOLONE [Suspect]
     Active Substance: PREDNISOLONE
     Indication: Rheumatoid arthritis
     Route: 065
     Dates: start: 1990, end: 2011
  2. AZATHIOPRINE [Suspect]
     Active Substance: AZATHIOPRINE
     Indication: Rheumatoid arthritis
     Route: 065
     Dates: start: 1990, end: 2011
  3. HYDROXYCHLOROQUINE [Suspect]
     Active Substance: HYDROXYCHLOROQUINE
     Indication: Rheumatoid arthritis
     Route: 065
     Dates: start: 1990, end: 2011
  4. METHOTREXATE [Suspect]
     Active Substance: METHOTREXATE
     Indication: Rheumatoid arthritis
     Route: 065
     Dates: start: 1990, end: 2011
  5. HYDROCORTISONE [Suspect]
     Active Substance: HYDROCORTISONE
     Indication: Adrenal insufficiency
     Route: 065
  6. POSACONAZOLE [Suspect]
     Active Substance: POSACONAZOLE
     Indication: Disseminated coccidioidomycosis
     Route: 048
  7. AMPHOTERICIN B [Suspect]
     Active Substance: AMPHOTERICIN B
     Indication: Coccidioidomycosis
     Route: 042
  8. VORICONAZOLE [Suspect]
     Active Substance: VORICONAZOLE
     Indication: Coccidioidomycosis
     Route: 042

REACTIONS (14)
  - Lower respiratory tract infection [Unknown]
  - Herpes zoster [Unknown]
  - Arthritis infective [Recovering/Resolving]
  - Metabolic acidosis [Unknown]
  - Disseminated coccidioidomycosis [Recovering/Resolving]
  - Coccidioidomycosis [Recovering/Resolving]
  - Electrolyte imbalance [Unknown]
  - Neuropathy peripheral [Unknown]
  - Rheumatoid arthritis [Unknown]
  - Device related infection [Recovering/Resolving]
  - Drug intolerance [Unknown]
  - Septic shock [Unknown]
  - Escherichia infection [Unknown]
  - Urosepsis [Unknown]
